FAERS Safety Report 7686665-X (Version None)
Quarter: 2011Q3

REPORT INFORMATION
  Report Type: 
  Country: None (occurrence: None)
  Receive Date: 20110816
  Receipt Date: 20110722
  Transmission Date: 20111222
  Serious: No
  Sender: FDA-Public Use
  Company Number: US-BAYER-2011-059953

PATIENT
  Age: 34 Year
  Sex: Female

DRUGS (2)
  1. INTERFERON BETA-1B [Suspect]
     Dosage: 6 MIU, QOD
     Route: 058
  2. INTERFERON BETA-1B [Suspect]
     Indication: MULTIPLE SCLEROSIS
     Dosage: 2 MIU, QOD
     Route: 058
     Dates: start: 20110608

REACTIONS (3)
  - DIARRHOEA [None]
  - INJECTION SITE ERYTHEMA [None]
  - INJECTION SITE URTICARIA [None]
